FAERS Safety Report 9337211 (Version 2)
Quarter: 2013Q2

REPORT INFORMATION
  Report Type: Spontaneous
  Country: US (occurrence: US)
  Receive Date: 20130607
  Receipt Date: 20130620
  Transmission Date: 20140414
  Serious: Yes (Hospitalization)
  Sender: FDA-Public Use
  Company Number: US-PFIZER INC-2013171145

PATIENT
  Age: 34 Year
  Sex: Female
  Weight: 59.86 kg

DRUGS (2)
  1. XANAX [Suspect]
     Indication: POST-TRAUMATIC STRESS DISORDER
     Dosage: 2 MG, 4X/DAY
  2. XANAX [Suspect]
     Indication: PANIC DISORDER

REACTIONS (4)
  - Back disorder [Unknown]
  - Pain [Not Recovered/Not Resolved]
  - Malaise [Not Recovered/Not Resolved]
  - Off label use [Not Recovered/Not Resolved]
